FAERS Safety Report 7221438-3 (Version None)
Quarter: 2011Q1

REPORT INFORMATION
  Report Type: 
  Country: None (occurrence: None)
  Receive Date: 20110103
  Receipt Date: 20101222
  Transmission Date: 20110831
  Serious: No
  Sender: FDA-Public Use
  Company Number: 2010EU005901

PATIENT
  Sex: Female

DRUGS (2)
  1. FK506 - OINTMENT (TACROLIMUS) OINTMENT [Suspect]
     Indication: DERMATITIS ATOPIC
     Dosage: 0.03 %,
     Dates: start: 20080101
  2. PIMECROLIMUS (PIMECROLIMUS, PIMECROLIMUS) [Concomitant]

REACTIONS (1)
  - HOSPITALISATION [None]
